FAERS Safety Report 11885380 (Version 2)
Quarter: 2016Q1

REPORT INFORMATION
  Report Type: Report from Study
  Country: GB (occurrence: GB)
  Receive Date: 20160104
  Receipt Date: 20160122
  Transmission Date: 20160526
  Serious: Yes (Hospitalization, Other)
  Sender: FDA-Public Use
  Company Number: GB-ABBVIE-15P-167-1529748-00

PATIENT
  Sex: Male

DRUGS (1)
  1. DUODOPA [Suspect]
     Active Substance: CARBIDOPA\LEVODOPA
     Indication: PARKINSON^S DISEASE
     Dosage: 8.5 MLS HOURLY RATE
     Route: 050
     Dates: start: 20090610

REACTIONS (3)
  - Device connection issue [Unknown]
  - Unresponsive to stimuli [Recovered/Resolved]
  - Incorrect dose administered [Unknown]
